FAERS Safety Report 9449149 (Version 1)
Quarter: 2013Q3

REPORT INFORMATION
  Report Type: Spontaneous
  Country: US (occurrence: US)
  Receive Date: 20130808
  Receipt Date: 20130808
  Transmission Date: 20140515
  Serious: Yes (Hospitalization)
  Sender: FDA-Public Use
  Company Number: US-FRI-1000047414

PATIENT
  Sex: Male

DRUGS (3)
  1. CELEXA [Suspect]
     Indication: DEPRESSION
     Dates: start: 20130611
  2. SPRYCEL [Suspect]
     Indication: GLIOBLASTOMA MULTIFORME
     Dates: start: 20130520, end: 20130621
  3. TEMOZOLOMIDE [Suspect]
     Indication: GLIOBLASTOMA MULTIFORME
     Dates: start: 20130520, end: 20130621

REACTIONS (5)
  - Cognitive disorder [Not Recovered/Not Resolved]
  - Somnolence [Not Recovered/Not Resolved]
  - Muscular weakness [Not Recovered/Not Resolved]
  - Depression [Unknown]
  - Lobar pneumonia [Unknown]
